FAERS Safety Report 14601925 (Version 3)
Quarter: 2019Q4

REPORT INFORMATION
  Report Type: Spontaneous
  Country: RO (occurrence: RO)
  Receive Date: 20180306
  Receipt Date: 20191030
  Transmission Date: 20200122
  Serious: Yes (Life-Threatening, Hospitalization, Other)
  Sender: FDA-Public Use
  Company Number: RO-ACCORD-063902

PATIENT
  Age: 42 Month
  Sex: Male

DRUGS (1)
  1. ESOMEPRAZOLE/ESOMEPRAZOLE MAGNESIUM/ESOMEPRAZOLE SODIUM [Suspect]
     Active Substance: ESOMEPRAZOLE
     Indication: GASTROOESOPHAGEAL REFLUX DISEASE
     Dosage: 0.5 MG/KG/QD
     Dates: start: 201505

REACTIONS (2)
  - Meningoencephalitis bacterial [Recovering/Resolving]
  - Meningitis streptococcal [Recovering/Resolving]

NARRATIVE: CASE EVENT DATE: 201510
